FAERS Safety Report 6640604-9 (Version None)
Quarter: 2010Q1

REPORT INFORMATION
  Report Type: 
  Country: None (occurrence: None)
  Receive Date: 20100318
  Receipt Date: 20100308
  Transmission Date: 20100710
  Serious: Yes (Hospitalization)
  Sender: FDA-Public Use
  Company Number: FI-BRISTOL-MYERS SQUIBB COMPANY-15007495

PATIENT
  Age: 68 Year
  Sex: Female

DRUGS (2)
  1. WARFARIN SODIUM [Suspect]
     Dosage: PREOPERATIVELY(5-11 DAY) 3MG AND POSTOPERATIVELY 5MG ON (3 AND 4TH DAY)
     Route: 048
  2. ENOXAPARIN SODIUM [Suspect]
     Indication: THROMBOSIS PROPHYLAXIS
     Dosage: REDUCED TO 40MGBID THEN 20MG, INTRRUPTED AND RESTARTED AT 20MG,20MG BID, 20MG TID AND 20MG 4 TIMES/D
     Route: 058

REACTIONS (3)
  - CEREBRAL HAEMORRHAGE [None]
  - DEEP VEIN THROMBOSIS [None]
  - INTERNATIONAL NORMALISED RATIO INCREASED [None]
